FAERS Safety Report 6712971-9 (Version None)
Quarter: 2010Q2

REPORT INFORMATION
  Report Type: 
  Country: None (occurrence: None)
  Receive Date: 20100505
  Receipt Date: 20100505
  Transmission Date: 20101027
  Serious: Yes (Hospitalization)
  Sender: FDA-Public Use
  Company Number: None

PATIENT
  Age: 60 Day
  Sex: Female
  Weight: 85.2762 kg

DRUGS (3)
  1. PREDNISONE [Suspect]
     Indication: HAIR DYE USER
     Dosage: 10MG 4X/DAY-1 6TH DAY PO
     Route: 048
     Dates: start: 20100330, end: 20100404
  2. PREDNISONE [Suspect]
     Indication: RASH PUSTULAR
     Dosage: 10MG 4X/DAY-1 6TH DAY PO
     Route: 048
     Dates: start: 20100330, end: 20100404
  3. PREDNISONE TAB [Suspect]
     Dosage: 20MG. 3X5DAYS-AND TAPER PO
     Route: 048
     Dates: start: 20100415, end: 20100424

REACTIONS (3)
  - BLOOD GLUCOSE INCREASED [None]
  - DEHYDRATION [None]
  - POLLAKIURIA [None]
